FAERS Safety Report 14249888 (Version 1)
Quarter: 2017Q4

REPORT INFORMATION
  Report Type: Spontaneous
  Country: US (occurrence: US)
  Receive Date: 20171204
  Receipt Date: 20171204
  Transmission Date: 20180321
  Serious: Yes (Life-Threatening, Hospitalization, Disabling)
  Sender: FDA-Public Use
  Company Number: None

PATIENT
  Age: 67 Year
  Sex: Female
  Weight: 98.55 kg

DRUGS (10)
  1. ATORVASTATIN [Concomitant]
     Active Substance: ATORVASTATIN
  2. ENOXAPARIN SODIUM. [Suspect]
     Active Substance: ENOXAPARIN SODIUM
     Indication: KNEE ARTHROPLASTY
     Dosage: ?          OTHER STRENGTH:0.3 ML;QUANTITY:1 INJECTION(S);?
     Route: 058
     Dates: start: 20170112, end: 20170119
  3. ENOXAPARIN SODIUM. [Suspect]
     Active Substance: ENOXAPARIN SODIUM
     Indication: ANTICOAGULANT THERAPY
     Dosage: ?          OTHER STRENGTH:0.3 ML;QUANTITY:1 INJECTION(S);?
     Route: 058
     Dates: start: 20170112, end: 20170119
  4. LOSARTAN. [Concomitant]
     Active Substance: LOSARTAN
  5. ALLEGRA [Concomitant]
     Active Substance: FEXOFENADINE HYDROCHLORIDE
  6. ELIQUIS [Concomitant]
     Active Substance: APIXABAN
  7. LOW DOSE ASPIRIN [Concomitant]
     Active Substance: ASPIRIN
  8. L-THYROXINE [Concomitant]
     Active Substance: LEVOTHYROXINE
  9. TYLENOL [Concomitant]
     Active Substance: ACETAMINOPHEN
  10. VITAMIN B12 [Concomitant]
     Active Substance: CYANOCOBALAMIN

REACTIONS (4)
  - Therapy cessation [None]
  - Hypersensitivity [None]
  - Stroke in evolution [None]
  - Heparin-induced thrombocytopenia [None]

NARRATIVE: CASE EVENT DATE: 20170120
